FAERS Safety Report 6531071-4 (Version None)
Quarter: 2010Q1

REPORT INFORMATION
  Report Type: 
  Country: None (occurrence: None)
  Receive Date: 20100108
  Receipt Date: 20091104
  Transmission Date: 20100710
  Serious: No
  Sender: FDA-Public Use
  Company Number: A0816636A

PATIENT
  Sex: Male

DRUGS (2)
  1. LOVAZA [Suspect]
     Dosage: 2CAP THREE TIMES PER DAY
     Route: 048
     Dates: start: 20091001, end: 20091101
  2. NIACIN [Concomitant]

REACTIONS (3)
  - OEDEMA PERIPHERAL [None]
  - PRURITUS [None]
  - URTICARIA [None]
